FAERS Safety Report 9712534 (Version 2)
Quarter: 2013Q4

REPORT INFORMATION
  Report Type: Spontaneous
  Country: PR (occurrence: PR)
  Receive Date: 20131126
  Receipt Date: 20131126
  Transmission Date: 20140711
  Serious: No
  Sender: FDA-Public Use
  Company Number: PR-BRISTOL-MYERS SQUIBB COMPANY-18881599

PATIENT
  Age: 2 Decade
  Sex: Male

DRUGS (1)
  1. BYDUREON [Suspect]

REACTIONS (2)
  - Hypoglycaemia [Unknown]
  - Asthenia [Unknown]
